FAERS Safety Report 8876934 (Version 1)
Quarter: 2012Q4

REPORT INFORMATION
  Report Type: Report from Study
  Country: DE (occurrence: DE)
  Receive Date: 20121030
  Receipt Date: 20121030
  Transmission Date: 20130627
  Serious: Yes (Hospitalization)
  Sender: FDA-Public Use
  Company Number: DE-BAXTER-2012BAX020963

PATIENT
  Age: 63 Year
  Sex: Male

DRUGS (9)
  1. ENDOXAN 1G [Suspect]
     Indication: NON-HODGKIN^S LYMPHOMA
     Route: 042
  2. ENDOXAN 1G [Suspect]
     Route: 042
     Dates: start: 20061229
  3. RITUXIMAB [Suspect]
     Indication: NON-HODGKIN^S LYMPHOMA
     Route: 042
  4. PENTOSTATIN [Suspect]
     Indication: NON-HODGKIN^S LYMPHOMA
     Route: 042
  5. PENTOSTATIN [Suspect]
     Route: 042
     Dates: start: 20061229
  6. LEVODOPA [Concomitant]
     Indication: DRUG USE FOR UNKNOWN INDICATION
     Route: 065
  7. METFORMIN [Concomitant]
     Indication: DRUG USE FOR UNKNOWN INDICATION
     Route: 065
  8. DIGITOXIN [Concomitant]
     Indication: DRUG USE FOR UNKNOWN INDICATION
     Route: 065
  9. TORSEMIDE [Concomitant]
     Indication: DRUG USE FOR UNKNOWN INDICATION
     Route: 065

REACTIONS (3)
  - Tumour lysis syndrome [Unknown]
  - Pyrexia [Unknown]
  - Renal impairment [Unknown]
